FAERS Safety Report 7620327-X (Version None)
Quarter: 2011Q3

REPORT INFORMATION
  Report Type: 
  Country: None (occurrence: None)
  Receive Date: 20110719
  Receipt Date: 20110714
  Transmission Date: 20111222
  Serious: Yes (Death)
  Sender: FDA-Public Use
  Company Number: PHHY2011BR63479

PATIENT
  Sex: Male
  Weight: 78 kg

DRUGS (2)
  1. TRILEPTAL [Suspect]
     Dosage: 300 MG, UNK
  2. TRILEPTAL [Suspect]
     Dosage: 600 MG, UNK

REACTIONS (1)
  - MYOCARDIAL INFARCTION [None]
